FAERS Safety Report 4449020-1 (Version None)
Quarter: 2004Q3

REPORT INFORMATION
  Report Type: 
  Country: None (occurrence: None)
  Receive Date: 20040909
  Receipt Date: 20040831
  Transmission Date: 20050211
  Serious: Yes (Other)
  Sender: FDA-Public Use
  Company Number: 2004061434

PATIENT
  Age: 61 Year
  Sex: Male

DRUGS (1)
  1. DILANTIN KAPSEAL [Suspect]
     Indication: ILL-DEFINED DISORDER
     Dosage: 100 MG (100 MG, 1 IN 1 D), ORAL
     Route: 048
     Dates: start: 20010101, end: 20010101

REACTIONS (3)
  - CEREBROVASCULAR ACCIDENT [None]
  - LUPUS-LIKE SYNDROME [None]
  - MYOCARDIAL INFARCTION [None]
